FAERS Safety Report 12633051 (Version 1)
Quarter: 2016Q3

REPORT INFORMATION
  Report Type: Spontaneous
  Country: US (occurrence: None)
  Receive Date: 20160808
  Receipt Date: 20160808
  Transmission Date: 20161109
  Serious: Yes (Life-Threatening, Hospitalization, Disabling)
  Sender: FDA-Public Use
  Company Number: None

PATIENT
  Age: 67 Year
  Sex: Female

DRUGS (6)
  1. DANDELION ROOT [Concomitant]
  2. MILK THISTLE [Concomitant]
     Active Substance: MILK THISTLE
  3. DEPAKOTE [Suspect]
     Active Substance: DIVALPROEX SODIUM
     Indication: EPILEPSY
     Route: 048
  4. GINGER. [Concomitant]
     Active Substance: GINGER
  5. NATTOKINASE [Concomitant]
     Active Substance: NATTOKINASE
  6. KELP [Concomitant]
     Active Substance: KELP

REACTIONS (4)
  - Hepatomegaly [None]
  - Seizure [None]
  - Liver injury [None]
  - Herbal interaction [None]

NARRATIVE: CASE EVENT DATE: 20160801
